FAERS Safety Report 8842124 (Version 1)
Quarter: 2012Q4

REPORT INFORMATION
  Report Type: Spontaneous
  Country: US (occurrence: None)
  Receive Date: 20121015
  Receipt Date: 20121015
  Transmission Date: 20130627
  Serious: Yes (Other)
  Sender: FDA-Public Use
  Company Number: None

PATIENT
  Age: 53 Year
  Sex: Female
  Weight: 62.1 kg

DRUGS (2)
  1. SOLU-CORTEF [Suspect]
     Indication: CONGENITAL ADRENAL HYPERPLASIA
     Dosage: Approximately 0.5-1.0mg/hour Continuous subcutaneous
     Route: 058
     Dates: start: 20120801
  2. SOLU-CORTEF [Suspect]
     Indication: CONGENITAL ADRENAL HYPERPLASIA

REACTIONS (2)
  - Pruritus [None]
  - Erythema [None]
